FAERS Safety Report 9324066 (Version 2)
Quarter: 2014Q1

REPORT INFORMATION
  Report Type: Report from Study
  Country: DE (occurrence: DE)
  Receive Date: 20130603
  Receipt Date: 20140106
  Transmission Date: 20141002
  Serious: Yes (Other)
  Sender: FDA-Public Use
  Company Number: DE-SANOFI-AVENTIS-2013SA055514

PATIENT
  Sex: 0

DRUGS (1)
  1. DRONEDARONE [Suspect]
     Indication: ARRHYTHMIA SUPRAVENTRICULAR
     Route: 048

REACTIONS (1)
  - Hyperthyroidism [Unknown]
